FAERS Safety Report 4281875-6 (Version None)
Quarter: 2004Q1

REPORT INFORMATION
  Report Type: 
  Country: None (occurrence: None)
  Receive Date: 20040128
  Receipt Date: 20040116
  Transmission Date: 20041129
  Serious: Yes (Hospitalization)
  Sender: FDA-Public Use
  Company Number: 04P-013-0247492-00

PATIENT
  Age: 47 Year
  Sex: Male

DRUGS (1)
  1. VALPROATE SODIUM [Suspect]
     Indication: EPILEPSY
     Dates: start: 19840101, end: 20030919

REACTIONS (6)
  - METASTASES TO ADRENALS [None]
  - PLEURA CARCINOMA [None]
  - PNEUMONIA [None]
  - PNEUMONITIS [None]
  - PRURITUS [None]
  - VIRAL INFECTION [None]
